FAERS Safety Report 17635703 (Version 1)
Quarter: 2020Q2

REPORT INFORMATION
  Report Type: Report from Study
  Country: US (occurrence: US)
  Receive Date: 20200406
  Receipt Date: 20200406
  Transmission Date: 20200713
  Serious: Yes (Death, Other)
  Sender: FDA-Public Use
  Company Number: US-AUROBINDO-AUR-APL-2020-016976

PATIENT
  Age: 70 Year

DRUGS (1)
  1. HYDROCODONE BITARTRATE AND ACETAMINOPHEN [Suspect]
     Active Substance: ACETAMINOPHEN\HYDROCODONE BITARTRATE
     Indication: PAIN
     Dosage: 5/325 MILLIGRAM ONE TO TWO TABLETS EVERY 3 TO 4 HOURS AS NEEDED
     Route: 065

REACTIONS (3)
  - Respiratory failure [Fatal]
  - Accidental overdose [Fatal]
  - Cardio-respiratory arrest [Fatal]
